FAERS Safety Report 7978803 (Version 9)
Quarter: 2013Q3

REPORT INFORMATION
  Report Type: Report from Study
  Country: CA (occurrence: CA)
  Receive Date: 20110607
  Receipt Date: 20130802
  Transmission Date: 20140515
  Serious: Yes (Hospitalization, Other)
  Sender: FDA-Public Use
  Company Number: PHHY2011CA31566

PATIENT
  Age: 52 Year
  Sex: Female

DRUGS (3)
  1. SANDOSTATIN LAR [Suspect]
     Indication: GLUCAGONOMA
     Dosage: 30 MG, ONCE IN A MONTH
     Route: 030
     Dates: start: 20080304
  2. AFINITOR [Suspect]
     Indication: GLUCAGONOMA
     Dosage: 10 MG, QD
     Route: 048
     Dates: start: 20110627
  3. AFINITOR [Suspect]
     Dosage: 10 MG, QD
     Route: 048

REACTIONS (8)
  - Renal tubular acidosis [Unknown]
  - Malaise [Unknown]
  - Gastroenteritis viral [Unknown]
  - Nausea [Unknown]
  - Vomiting [Unknown]
  - Heart rate increased [Unknown]
  - Pulmonary embolism [Unknown]
  - Abdominal distension [Unknown]
